FAERS Safety Report 4689142-3 (Version None)
Quarter: 2005Q2

REPORT INFORMATION
  Report Type: 
  Country: None (occurrence: None)
  Receive Date: 20050608
  Receipt Date: 20050317
  Transmission Date: 20051028
  Serious: No
  Sender: FDA-Public Use
  Company Number: 2005-BP-04526BP

PATIENT
  Sex: Female

DRUGS (5)
  1. SPIRIVA [Suspect]
     Indication: CHRONIC OBSTRUCTIVE PULMONARY DISEASE
     Dosage: 18 MCG (18 MCG, QD), IH
     Route: 055
     Dates: start: 20050114
  2. SINGULAIR (MONTELUKAST) [Concomitant]
  3. ASTELIN [Concomitant]
  4. PLAVIX [Concomitant]
  5. SYNTHROID [Concomitant]

REACTIONS (1)
  - DYSPNOEA EXACERBATED [None]
